FAERS Safety Report 14159538 (Version 4)
Quarter: 2017Q4

REPORT INFORMATION
  Report Type: Spontaneous
  Country: US (occurrence: US)
  Receive Date: 20171106
  Receipt Date: 20171213
  Transmission Date: 20180321
  Serious: Yes (Other)
  Sender: FDA-Public Use
  Company Number: US-PFIZER INC-2017471799

PATIENT
  Age: 56 Year
  Sex: Female

DRUGS (7)
  1. TRAZODONE [Concomitant]
     Active Substance: TRAZODONE HYDROCHLORIDE
     Indication: DEPRESSION
  2. LISINOPRIL + HIDROCLOROTIAZIDA [Concomitant]
     Active Substance: HYDROCHLOROTHIAZIDE\LISINOPRIL
     Indication: HYPERTENSION
     Dosage: 1 DF, DAILY [LISINOPRIL 20]/[ HIDROCLOROTIAZIDA 12.5]
     Route: 048
  3. CARVEDILOL. [Concomitant]
     Active Substance: CARVEDILOL
     Indication: HYPERTENSION
     Dosage: 12.5 MG, DAILY
     Route: 048
  4. CLONAZEPAM. [Concomitant]
     Active Substance: CLONAZEPAM
     Indication: PANIC ATTACK
     Dosage: 1 MG, AS NEEDED (1 TABLET 3 TIMES PER DAY AS NEEDED)
  5. CLONAZEPAM. [Concomitant]
     Active Substance: CLONAZEPAM
     Indication: SLEEP DISORDER
  6. CHANTIX [Suspect]
     Active Substance: VARENICLINE TARTRATE
     Indication: SMOKING CESSATION THERAPY
     Dosage: UNK
     Dates: start: 201706
  7. TRAZODONE [Concomitant]
     Active Substance: TRAZODONE HYDROCHLORIDE
     Indication: SLEEP DISORDER
     Dosage: 200 MG, 1X/DAY (2 TABLETS AT BEDTIME)
     Route: 048

REACTIONS (22)
  - Venous injury [Unknown]
  - Intentional product misuse [Not Recovered/Not Resolved]
  - Amnesia [Unknown]
  - Dizziness [Unknown]
  - Fall [Unknown]
  - Furuncle [Unknown]
  - Skin haemorrhage [Unknown]
  - Abnormal dreams [Recovered/Resolved]
  - Burning sensation [Unknown]
  - Condition aggravated [Unknown]
  - Pain [Unknown]
  - Hypoaesthesia [Unknown]
  - Skin odour abnormal [Unknown]
  - Abnormal behaviour [Unknown]
  - Vulvovaginal rash [Unknown]
  - Pain in extremity [Unknown]
  - Loss of consciousness [Unknown]
  - Autoimmune disorder [Unknown]
  - Crying [Unknown]
  - Speech disorder [Unknown]
  - Alopecia [Unknown]
  - Suicidal ideation [Unknown]

NARRATIVE: CASE EVENT DATE: 201708
